FAERS Safety Report 18848727 (Version 2)
Quarter: 2021Q1

REPORT INFORMATION
  Report Type: Spontaneous
  Country: US (occurrence: US)
  Receive Date: 20210204
  Receipt Date: 20210204
  Transmission Date: 20210419
  Serious: Yes (Other)
  Sender: FDA-Public Use
  Company Number: US-COOPERSURGICAL, INC.-US-2021CPS000202

PATIENT
  Age: 47 Year
  Sex: Female
  Weight: 124 kg

DRUGS (1)
  1. PARAGARD T 380A [Suspect]
     Active Substance: COPPER
     Indication: CONTRACEPTION
     Dosage: UNK
     Route: 015
     Dates: start: 20100927, end: 20210119

REACTIONS (7)
  - Foreign body in reproductive tract [Recovered/Resolved]
  - Uterine enlargement [Unknown]
  - Device use issue [Recovered/Resolved]
  - Menorrhagia [Unknown]
  - Complication of device removal [Recovered/Resolved]
  - Endometriosis [Unknown]
  - Device breakage [Recovered/Resolved]

NARRATIVE: CASE EVENT DATE: 20210119
